FAERS Safety Report 19125410 (Version 1)
Quarter: 2021Q2

REPORT INFORMATION
  Report Type: Spontaneous
  Country: CN (occurrence: CN)
  Receive Date: 20210413
  Receipt Date: 20210413
  Transmission Date: 20210717
  Serious: Yes (Other)
  Sender: FDA-Public Use
  Company Number: CN-JNJFOC-20210420952

PATIENT
  Age: 65 Year
  Sex: Male
  Weight: 67 kg

DRUGS (1)
  1. TRAMADOL HYDROCHLORIDE. [Suspect]
     Active Substance: TRAMADOL HYDROCHLORIDE
     Indication: CARDIAC NEOPLASM UNSPECIFIED
     Dosage: 0.1 GRAM, 1/DAY
     Route: 030
     Dates: start: 20210306, end: 20210306

REACTIONS (3)
  - Insomnia [Recovering/Resolving]
  - Delirium [Recovering/Resolving]
  - Soliloquy [Recovering/Resolving]

NARRATIVE: CASE EVENT DATE: 20210309
